FAERS Safety Report 5815822-X (Version None)
Quarter: 2008Q3

REPORT INFORMATION
  Report Type: 
  Country: None (occurrence: None)
  Receive Date: 20080721
  Receipt Date: 20080709
  Transmission Date: 20090109
  Serious: Yes (Hospitalization, Other)
  Sender: FDA-Public Use
  Company Number: GB-JNJFOC-20080702830

PATIENT
  Sex: Male
  Weight: 76 kg

DRUGS (6)
  1. REMICADE [Suspect]
     Indication: ANKYLOSING SPONDYLITIS
     Route: 042
  2. AZATHOPRINE [Concomitant]
  3. PREDNISOLONE [Concomitant]
  4. CO-DYDRAMOL [Concomitant]
  5. RANITIDINE HCL [Concomitant]
  6. INDOCIN [Concomitant]

REACTIONS (1)
  - LOWER LIMB FRACTURE [None]
